FAERS Safety Report 21673504 (Version 1)
Quarter: 2022Q4

REPORT INFORMATION
  Report Type: Spontaneous
  Country: US (occurrence: US)
  Receive Date: 20221202
  Receipt Date: 20221202
  Transmission Date: 20230113
  Serious: Yes (Hospitalization)
  Sender: FDA-Public Use
  Company Number: US-MYLANLABS-2022M1134255

PATIENT
  Age: 60 Year
  Sex: Male

DRUGS (2)
  1. MOXIFLOXACIN [Suspect]
     Active Substance: MOXIFLOXACIN
     Indication: Eye disorder prophylaxis
     Dosage: 0.2 MILLILITER, UNDILUTED PRESERVATIVE FREE INTRACAMERAL MOXIFLOXACIN
  2. MOXIFLOXACIN [Suspect]
     Active Substance: MOXIFLOXACIN
     Indication: Eye disorder prophylaxis
     Dosage: 0.1 MILLILITER, INTRASTROMAL
     Route: 065

REACTIONS (3)
  - Corneal decompensation [Unknown]
  - Toxic anterior segment syndrome [Unknown]
  - Off label use [Unknown]
